FAERS Safety Report 18593412 (Version 4)
Quarter: 2022Q3

REPORT INFORMATION
  Report Type: Spontaneous
  Country: JP (occurrence: JP)
  Receive Date: 20201209
  Receipt Date: 20220713
  Transmission Date: 20221027
  Serious: Yes (Other)
  Sender: FDA-Public Use
  Company Number: JP-GSKNCCC-CASE-01097877_AE-37690

PATIENT

DRUGS (3)
  1. ATOVAQUONE [Suspect]
     Active Substance: ATOVAQUONE
     Indication: Pneumocystis jirovecii pneumonia
     Dosage: 5 ML, BID
     Route: 048
  2. ATOVAQUONE [Suspect]
     Active Substance: ATOVAQUONE
     Dosage: UNK
     Route: 050
  3. PENTAMIDINE ISETHIONATE [Concomitant]
     Active Substance: PENTAMIDINE ISETHIONATE
     Indication: Pneumocystis jirovecii pneumonia
     Dosage: UNK

REACTIONS (5)
  - Gastrointestinal haemorrhage [Unknown]
  - Ischaemic hepatitis [Unknown]
  - Hepatic function abnormal [Unknown]
  - Pancreatic enzymes increased [Unknown]
  - Product use issue [Unknown]
